FAERS Safety Report 6673729-2 (Version None)
Quarter: 2010Q2

REPORT INFORMATION
  Report Type: 
  Country: None (occurrence: None)
  Receive Date: 20100408
  Receipt Date: 20100329
  Transmission Date: 20101027
  Serious: Yes (Hospitalization)
  Sender: FDA-Public Use
  Company Number: US-ABBOTT-10P-163-0635124-00

PATIENT
  Sex: Female
  Weight: 86.26 kg

DRUGS (4)
  1. HUMIRA [Suspect]
     Indication: RHEUMATOID ARTHRITIS
     Dates: start: 20060101, end: 20100201
  2. HUMIRA [Suspect]
     Indication: PSORIASIS
  3. VICODIN [Concomitant]
     Indication: PAIN
  4. MOTRIN [Concomitant]
     Indication: PAIN

REACTIONS (3)
  - ARTHRALGIA [None]
  - OSTEOARTHRITIS [None]
  - PAIN [None]
